FAERS Safety Report 8586817-0 (Version None)
Quarter: 2012Q3

REPORT INFORMATION
  Report Type: 
  Country: None (occurrence: None)
  Receive Date: 20120810
  Receipt Date: 20120731
  Transmission Date: 20120928
  Serious: No
  Sender: FDA-Public Use
  Company Number: US-ASTRAZENECA-2012SE28167

PATIENT
  Age: 54 Year
  Sex: Female

DRUGS (3)
  1. TRAMADOL HCL [Concomitant]
     Indication: PAIN
  2. NEXIUM [Suspect]
     Route: 048
  3. NAPROXEN [Concomitant]
     Indication: PAIN

REACTIONS (4)
  - DYSPHONIA [None]
  - SPEECH DISORDER [None]
  - DRY THROAT [None]
  - DRUG DOSE OMISSION [None]
